FAERS Safety Report 5236588-0 (Version None)
Quarter: 2007Q1

REPORT INFORMATION
  Report Type: 
  Country: None (occurrence: None)
  Receive Date: 20070208
  Receipt Date: 20070130
  Transmission Date: 20070707
  Serious: Yes (Hospitalization)
  Sender: FDA-Public Use
  Company Number: 07022002

PATIENT
  Age: 75 Year
  Sex: Male

DRUGS (12)
  1. WARFARIN SODIUM [Suspect]
     Indication: ATRIAL FIBRILLATION
     Dosage: ORAL
     Route: 048
  2. ASPIRIN [Suspect]
     Dosage: 81 MG, QD, ORAL
     Route: 048
  3. METFORMIN HCL [Concomitant]
  4. GLIPIZIDE [Concomitant]
  5. OMEGA 3 (FISH OIL) [Suspect]
     Dosage: 6G, QD
  6. METFORMIN HCL [Concomitant]
  7. GLIPIZIDE [Concomitant]
  8. SIMVASTATIN [Concomitant]
  9. FUROSEMIDE (FRUSEMIDE) [Concomitant]
  10. POTASSIUM CHLORIDE [Concomitant]
  11. LORAZEPAM [Concomitant]
  12. IPRATROPIUM BROMIDE [Concomitant]

REACTIONS (3)
  - FALL [None]
  - INTERNATIONAL NORMALISED RATIO DECREASED [None]
  - SUBDURAL HAEMATOMA [None]
